FAERS Safety Report 5365890-7 (Version None)
Quarter: 2007Q2

REPORT INFORMATION
  Report Type: 
  Country: None (occurrence: None)
  Receive Date: 20070621
  Receipt Date: 20070608
  Transmission Date: 20071010
  Serious: Yes (Death, Life-Threatening, Disabling, Other)
  Sender: FDA-Public Use
  Company Number: US-MERCK-0703USA01475

PATIENT
  Age: 84 Year
  Sex: Male
  Weight: 56 kg

DRUGS (13)
  1. COSOPT [Suspect]
     Route: 047
     Dates: start: 20061101, end: 20061101
  2. ALBUTEROL [Concomitant]
     Route: 065
  3. XOPENEX [Concomitant]
     Route: 065
  4. WARFARIN [Concomitant]
     Route: 065
  5. SYNTHROID [Concomitant]
     Route: 065
  6. SINGULAIR [Concomitant]
     Route: 065
  7. FLOMAX (MORNIFLUMATE) [Concomitant]
     Route: 065
  8. DIOVAN [Concomitant]
     Route: 065
  9. DIGOXIN [Concomitant]
     Route: 065
  10. NORVASC [Concomitant]
     Route: 065
  11. XALATAN [Concomitant]
     Route: 065
  12. SPIRIVA [Concomitant]
     Route: 065
  13. PEPCID [Concomitant]
     Route: 065

REACTIONS (2)
  - DEATH [None]
  - DYSPNOEA [None]
